FAERS Safety Report 7738569-1 (Version None)
Quarter: 2011Q3

REPORT INFORMATION
  Report Type: 
  Country: None (occurrence: None)
  Receive Date: 20110908
  Receipt Date: 20110830
  Transmission Date: 20111222
  Serious: Yes (Hospitalization)
  Sender: FDA-Public Use
  Company Number: IT-B.I. PHARMACEUTICALS,INC./RIDGEFIELD-2011-IT-00216IT

PATIENT
  Sex: Male

DRUGS (12)
  1. SIMVASTATIN [Suspect]
     Indication: HYPERCHOLESTEROLAEMIA
     Dosage: 20 MG
     Route: 048
     Dates: start: 20010101
  2. LANOXIN [Concomitant]
  3. LANSOPRAZOLE [Concomitant]
     Indication: PROPHYLAXIS AGAINST GASTROINTESTINAL ULCER
  4. LASIX [Concomitant]
  5. SPIRAMICINA [Suspect]
     Dosage: 3000000 U
     Route: 048
     Dates: start: 20110704, end: 20110714
  6. COUMADIN [Concomitant]
     Indication: ATRIAL FIBRILLATION
  7. TRINIPLAS [Concomitant]
     Route: 062
  8. PRAMIPEXOLE DIHYDROCHLORIDE [Suspect]
     Indication: PARKINSONISM
     Dosage: 0.72 MG
     Route: 048
     Dates: start: 20110601, end: 20110714
  9. GLICLAZIDE [Concomitant]
     Indication: TYPE 2 DIABETES MELLITUS
  10. BIFRIZIDE [Concomitant]
     Indication: HYPERTENSION
  11. LEVOBREN [Concomitant]
  12. CARDICOR [Concomitant]

REACTIONS (6)
  - MYALGIA [None]
  - RHABDOMYOLYSIS [None]
  - RENAL FAILURE ACUTE [None]
  - BLOOD CREATINE PHOSPHOKINASE INCREASED [None]
  - MYOGLOBIN BLOOD INCREASED [None]
  - TROPONIN T INCREASED [None]
